FAERS Safety Report 13143017 (Version 2)
Quarter: 2017Q1

REPORT INFORMATION
  Report Type: Spontaneous
  Country: US (occurrence: US)
  Receive Date: 20170124
  Receipt Date: 20170125
  Transmission Date: 20170428
  Serious: No
  Sender: FDA-Public Use
  Company Number: US-PFIZER INC-2017027444

PATIENT
  Sex: Female

DRUGS (3)
  1. 6-MP [Suspect]
     Active Substance: MERCAPTOPURINE
     Dosage: 100 MG, 1X/DAY (QHS)X 14 DAYS
     Route: 048
     Dates: start: 20140323
  2. METHOTREXATE SODIUM. [Suspect]
     Active Substance: METHOTREXATE SODIUM
     Indication: ACUTE LYMPHOCYTIC LEUKAEMIA
     Dosage: 12 MG, UNK
  3. HYDROCORTISONE. [Suspect]
     Active Substance: HYDROCORTISONE
     Dosage: UNK

REACTIONS (2)
  - Decubitus ulcer [Unknown]
  - Back pain [Unknown]

NARRATIVE: CASE EVENT DATE: 201603
